FAERS Safety Report 9894113 (Version 1)
Quarter: 2014Q1

REPORT INFORMATION
  Report Type: Spontaneous
  Country: FR (occurrence: FR)
  Receive Date: 20140213
  Receipt Date: 20140213
  Transmission Date: 20141002
  Serious: Yes (Hospitalization, Other)
  Sender: FDA-Public Use
  Company Number: FR-MERCK-1402FRA001217

PATIENT
  Age: 57 Year
  Sex: Male

DRUGS (10)
  1. NOXAFIL [Suspect]
     Dosage: 300 MG, TID
     Route: 048
     Dates: start: 20131205, end: 20140109
  2. CEFEPIME [Suspect]
     Dosage: 2 G, TID
     Route: 042
     Dates: start: 20131224, end: 20131229
  3. VANCOMYCIN [Suspect]
     Dosage: 2.5 G, QD
     Route: 042
     Dates: start: 20131224, end: 20140102
  4. HEPARIN SODIUM [Suspect]
     Dosage: 7000 IU, QD
     Route: 042
     Dates: start: 20131224, end: 20140108
  5. AMIKACIN [Suspect]
     Dosage: 1750 MG, QD
     Route: 065
     Dates: start: 20131226, end: 20131230
  6. CUBICIN [Suspect]
     Dosage: 420 MG, QD
     Route: 042
     Dates: start: 20140103, end: 20140107
  7. TAZOCILLINE [Suspect]
     Dosage: 16 G, QD
     Route: 042
     Dates: start: 20131230, end: 20140103
  8. ZELITREX [Suspect]
     Dosage: 2 DF, TID
     Route: 048
     Dates: start: 20131203, end: 20140112
  9. INEXIUM [Suspect]
     Dosage: 20 MG, QD
     Route: 048
     Dates: start: 20131205, end: 20140111
  10. CYCLOSPORINE [Suspect]
     Dosage: 220 MG, QD
     Dates: start: 20131214, end: 20140105

REACTIONS (3)
  - Skin mass [Unknown]
  - Myalgia [Unknown]
  - Generalised oedema [Unknown]
